FAERS Safety Report 5769160-4 (Version None)
Quarter: 2008Q2

REPORT INFORMATION
  Report Type: 
  Country: None (occurrence: None)
  Receive Date: 20080610
  Receipt Date: 20080529
  Transmission Date: 20081010
  Serious: Yes (Other)
  Sender: FDA-Public Use
  Company Number: 6043293

PATIENT
  Age: 54 Year
  Sex: Male

DRUGS (3)
  1. CONCOR (BISOPROLOL FUMARATE) [Suspect]
     Indication: DRUG USE FOR UNKNOWN INDICATION
     Dosage: (2.5 MG) ORAL
     Route: 048
  2. AMOXICILLIN [Suspect]
     Indication: DRUG USE FOR UNKNOWN INDICATION
  3. COUMADIN [Suspect]
     Indication: INTERNATIONAL NORMALISED RATIO
     Dosage: (5 MG) ORAL
     Route: 048

REACTIONS (1)
  - MOUTH HAEMORRHAGE [None]
